FAERS Safety Report 16637312 (Version 1)
Quarter: 2019Q3

REPORT INFORMATION
  Report Type: Spontaneous
  Country: US (occurrence: US)
  Receive Date: 20190726
  Receipt Date: 20190726
  Transmission Date: 20191004
  Serious: No
  Sender: FDA-Public Use
  Company Number: US-PERRIGO-19US004612

PATIENT

DRUGS (1)
  1. MINOXIDIL. [Suspect]
     Active Substance: MINOXIDIL
     Indication: ALOPECIA
     Dosage: UNKNOWN, BID
     Route: 061
     Dates: start: 201903

REACTIONS (4)
  - Application site pruritus [Unknown]
  - Skin injury [Unknown]
  - Product administered at inappropriate site [Unknown]
  - Application site discolouration [Unknown]

NARRATIVE: CASE EVENT DATE: 201903
